FAERS Safety Report 19605810 (Version 2)
Quarter: 2021Q3

REPORT INFORMATION
  Report Type: Report from Study
  Country: US (occurrence: US)
  Receive Date: 20210723
  Receipt Date: 20210913
  Transmission Date: 20211014
  Serious: Yes (Other)
  Sender: FDA-Public Use
  Company Number: US-TAKEDA-2021TUS044890

PATIENT
  Age: 58 Year
  Sex: Female
  Weight: 115 kg

DRUGS (23)
  1. SODIUM CHLORIDE. [Concomitant]
     Active Substance: SODIUM CHLORIDE
  2. LISINOPRIL. [Concomitant]
     Active Substance: LISINOPRIL
  3. DECONGESTANT [Concomitant]
     Active Substance: UNSPECIFIED INGREDIENT
  4. VITAMIN D2 [Concomitant]
     Active Substance: ERGOCALCIFEROL
  5. SYMBICORT [Concomitant]
     Active Substance: BUDESONIDE\FORMOTEROL FUMARATE DIHYDRATE
  6. ATENOLOL AND CHLORTHALIDONE [Concomitant]
     Active Substance: ATENOLOL\CHLORTHALIDONE
  7. SIMVASTATIN. [Concomitant]
     Active Substance: SIMVASTATIN
  8. ACETAMINOPHEN. [Concomitant]
     Active Substance: ACETAMINOPHEN
  9. DIPHENHYDRAMINE. [Concomitant]
     Active Substance: DIPHENHYDRAMINE
  10. EPINEPHRINE. [Concomitant]
     Active Substance: EPINEPHRINE
  11. VIBERZI [Concomitant]
     Active Substance: ELUXADOLINE
  12. NAPROXEN. [Concomitant]
     Active Substance: NAPROXEN
  13. ALBUTEROL. [Concomitant]
     Active Substance: ALBUTEROL
  14. AZELASTINE. [Concomitant]
     Active Substance: AZELASTINE HYDROCHLORIDE
  15. HUMAN NORMAL IMMUNOGLOBULIN; LIQUID [Suspect]
     Active Substance: HUMAN IMMUNOGLOBULIN G
     Indication: IMMUNODEFICIENCY COMMON VARIABLE
     Dosage: 50 GRAM, Q4WEEKS
     Route: 042
     Dates: start: 20210630
  16. HYDROCHLOROTHIAZIDE. [Concomitant]
     Active Substance: HYDROCHLOROTHIAZIDE
  17. FLUTICASONE. [Concomitant]
     Active Substance: FLUTICASONE
  18. LIDOCAINE. [Concomitant]
     Active Substance: LIDOCAINE
  19. FAMOTIDINE. [Concomitant]
     Active Substance: FAMOTIDINE
  20. LYRICA [Concomitant]
     Active Substance: PREGABALIN
  21. CYMBALTA [Concomitant]
     Active Substance: DULOXETINE HYDROCHLORIDE
  22. PROAIR HFA [Concomitant]
     Active Substance: ALBUTEROL SULFATE
  23. ONDANSETRON [Concomitant]
     Active Substance: ONDANSETRON

REACTIONS (7)
  - Tibia fracture [Unknown]
  - Back pain [Unknown]
  - Meniscus injury [Unknown]
  - Infusion related reaction [Unknown]
  - Headache [Unknown]
  - Diabetes mellitus [Unknown]
  - Nausea [Unknown]

NARRATIVE: CASE EVENT DATE: 20210806
